FAERS Safety Report 15844153 (Version 2)
Quarter: 2019Q1

REPORT INFORMATION
  Report Type: Spontaneous
  Country: RU (occurrence: RU)
  Receive Date: 20190118
  Receipt Date: 20190131
  Transmission Date: 20190417
  Serious: Yes (Other)
  Sender: FDA-Public Use
  Company Number: RU-MARINA BIOTECH, INC.-2019MARINA000538

PATIENT

DRUGS (5)
  1. PRESTANCE [Suspect]
     Active Substance: AMLODIPINE BESYLATE\PERINDOPRIL ARGININE
     Indication: HYPERTENSION
     Dosage: 1 (10MG/10MG) TABLET, QD (MORNING)
     Route: 048
     Dates: start: 2017, end: 20181228
  2. TRIPLIXAM [Suspect]
     Active Substance: AMLODIPINE BESYLATE\INDAPAMIDE\PERINDOPRIL ARGININE
     Indication: PRODUCT USE ISSUE
     Dosage: 0.5 (10MG/2.5MG/10MG) TABLET, QD
     Route: 048
     Dates: start: 20190115
  3. TRIPLIXAM [Suspect]
     Active Substance: AMLODIPINE BESYLATE\INDAPAMIDE\PERINDOPRIL ARGININE
     Indication: HYPERTENSION
     Dosage: 0.25 (10/2.5/10 MG) TABLET, QD
     Route: 048
     Dates: start: 201901, end: 20190114
  4. LISINOPRIL. [Concomitant]
     Active Substance: LISINOPRIL
     Indication: HYPERTENSION
     Dosage: 10 MG, QD
     Dates: start: 2017
  5. PRESTANCE [Suspect]
     Active Substance: AMLODIPINE BESYLATE\PERINDOPRIL ARGININE
     Dosage: 1 (10MG/10MG) TABLET, QD (MORNING)
     Route: 048
     Dates: start: 20181229, end: 201901

REACTIONS (3)
  - Drug ineffective [Recovered/Resolved]
  - Product use issue [Unknown]
  - Suspected counterfeit product [Unknown]

NARRATIVE: CASE EVENT DATE: 20181229
